FAERS Safety Report 21612436 (Version 1)
Quarter: 2022Q4

REPORT INFORMATION
  Report Type: Spontaneous
  Country: US (occurrence: US)
  Receive Date: 20221118
  Receipt Date: 20221118
  Transmission Date: 20230113
  Serious: No
  Sender: FDA-Public Use
  Company Number: US-GSKCCFUS-Case-01557885_AE-88073

PATIENT
  Age: 35 Year
  Sex: Female

DRUGS (1)
  1. BENLYSTA [Suspect]
     Active Substance: BELIMUMAB
     Indication: Lupus nephritis
     Dosage: 400 MG
     Dates: start: 20221107

REACTIONS (1)
  - Swelling face [Recovered/Resolved]

NARRATIVE: CASE EVENT DATE: 20221107
